FAERS Safety Report 9527660 (Version 1)
Quarter: 2013Q1

REPORT INFORMATION
  Report Type: Spontaneous
  Country: US (occurrence: None)
  Receive Date: 20130314
  Receipt Date: 20130314
  Transmission Date: 20140127
  Serious: No
  Sender: FDA-Public Use
  Company Number: 1211USA006499

PATIENT
  Age: 59 Year
  Sex: Male

DRUGS (3)
  1. VICTRELIS [Suspect]
     Indication: HEPATITIS C
     Route: 048
     Dates: start: 20120520
  2. RIBAVIRIN [Suspect]
     Dosage: 400MG IN THE MORNING, 200MG IN THE EVENING, ORAL
     Route: 048
  3. PEGINTERFERON ALFA-2B [Suspect]
     Dosage: 135 MICROGRAM, QW, SUBCUTANEOUS
     Route: 058

REACTIONS (1)
  - Blood triglycerides increased [None]
